FAERS Safety Report 9184418 (Version 1)
Quarter: 2012Q4

REPORT INFORMATION
  Report Type: 
  Country: CN (occurrence: CN)
  Receive Date: 20121031
  Receipt Date: 20121031
  Transmission Date: 20130627
  Serious: Yes (Other)
  Sender: FDA-Public Use
  Company Number: CN-ELI_LILLY_AND_COMPANY-CN201210006372

PATIENT
  Age: 76 None
  Sex: Female
  Weight: 52 kg

DRUGS (1)
  1. ZYPREXA [Suspect]
     Dosage: 2.5 mg, qd
     Route: 048
     Dates: start: 20100405

REACTIONS (3)
  - Dysuria [Not Recovered/Not Resolved]
  - Abdominal distension [Not Recovered/Not Resolved]
  - Off label use [Recovered/Resolved]
